FAERS Safety Report 10622190 (Version 1)
Quarter: 2014Q4

REPORT INFORMATION
  Report Type: Spontaneous
  Country: JP (occurrence: JP)
  Receive Date: 20141203
  Receipt Date: 20141203
  Transmission Date: 20150529
  Serious: Yes (Other)
  Sender: FDA-Public Use
  Company Number: JP-SA-2014SA165198

PATIENT

DRUGS (2)
  1. BAYASPIRIN [Concomitant]
     Active Substance: ASPIRIN
     Indication: POSTOPERATIVE CARE
     Dosage: STRENGTH: 100 MG
  2. PLAVIX [Suspect]
     Active Substance: CLOPIDOGREL BISULFATE
     Route: 048

REACTIONS (1)
  - Pneumonia [Recovered/Resolved]
